FAERS Safety Report 5335310-7 (Version None)
Quarter: 2007Q2

REPORT INFORMATION
  Report Type: 
  Country: None (occurrence: None)
  Receive Date: 20070525
  Receipt Date: 20070516
  Transmission Date: 20071010
  Serious: Yes (Other)
  Sender: FDA-Public Use
  Company Number: US-PFIZER INC-2007035626

PATIENT
  Sex: Female

DRUGS (1)
  1. CHANTIX [Suspect]
     Indication: SMOKING CESSATION THERAPY

REACTIONS (7)
  - ANOREXIA [None]
  - DRUG INEFFECTIVE [None]
  - FLATULENCE [None]
  - INSOMNIA [None]
  - MALAISE [None]
  - VOMITING [None]
  - WEIGHT DECREASED [None]
